FAERS Safety Report 20987805 (Version 1)
Quarter: 2022Q2

REPORT INFORMATION
  Report Type: Spontaneous
  Country: US (occurrence: None)
  Receive Date: 20220620
  Receipt Date: 20220620
  Transmission Date: 20220721
  Serious: Yes (Other)
  Sender: FDA-Public Use
  Company Number: None

PATIENT
  Age: 57 Year
  Sex: Female
  Weight: 73.35 kg

DRUGS (12)
  1. PAXLOVID [Suspect]
     Active Substance: NIRMATRELVIR\RITONAVIR
     Indication: COVID-19
     Route: 048
     Dates: start: 20220506, end: 20220509
  2. LEVOTHYROXINE [Concomitant]
     Active Substance: LEVOTHYROXINE
  3. ASPIRIN [Concomitant]
     Active Substance: ASPIRIN
  4. Telmisartin [Concomitant]
  5. VitD3 [Concomitant]
  6. FISH OIL [Concomitant]
     Active Substance: FISH OIL
  7. JWH-018 [Concomitant]
     Active Substance: JWH-018
  8. MAGNESIUM [Concomitant]
     Active Substance: MAGNESIUM
  9. POTASSIUM [Concomitant]
     Active Substance: POTASSIUM
  10. vitC [Concomitant]
  11. vit B-12 [Concomitant]
  12. ZINC [Concomitant]
     Active Substance: ZINC

REACTIONS (1)
  - Urticaria [None]

NARRATIVE: CASE EVENT DATE: 20220506
